FAERS Safety Report 13522215 (Version 2)
Quarter: 2017Q2

REPORT INFORMATION
  Report Type: Spontaneous
  Country: AU (occurrence: AU)
  Receive Date: 20170508
  Receipt Date: 20170524
  Transmission Date: 20170830
  Serious: Yes (Hospitalization, Other)
  Sender: FDA-Public Use
  Company Number: AU-GLAXOSMITHKLINE-AU2017GSK065965

PATIENT
  Age: 41 Year
  Sex: Female
  Weight: 92 kg

DRUGS (6)
  1. EFORMOTEROL [Concomitant]
     Active Substance: FORMOTEROL
  2. MYCOPHENOLATE [Concomitant]
     Active Substance: MYCOPHENOLIC ACID
  3. BUDESONIDE. [Concomitant]
     Active Substance: BUDESONIDE
  4. NUCALA [Suspect]
     Active Substance: MEPOLIZUMAB
     Indication: ASTHMA
     Dosage: UNK
     Route: 058
     Dates: start: 20170406
  5. PREDNISOLONE. [Concomitant]
     Active Substance: PREDNISOLONE
  6. CICLESONIDE [Concomitant]
     Active Substance: CICLESONIDE

REACTIONS (2)
  - Pancreatitis [Recovering/Resolving]
  - Abdominal pain [Recovering/Resolving]

NARRATIVE: CASE EVENT DATE: 20170428
